FAERS Safety Report 20632151 (Version 1)
Quarter: 2022Q1

REPORT INFORMATION
  Report Type: Spontaneous
  Country: DE (occurrence: DE)
  Receive Date: 20220324
  Receipt Date: 20220324
  Transmission Date: 20220424
  Serious: Yes (Other)
  Sender: FDA-Public Use
  Company Number: DE-NOVARTISPH-NVSC2022DE064808

PATIENT
  Sex: Female

DRUGS (2)
  1. MAYZENT [Suspect]
     Active Substance: SIPONIMOD
     Indication: Product used for unknown indication
     Dosage: 0.5 DOSAGE FORM, QD (HALF TABLET, 1 MG)
     Route: 065
  2. RAMIPRIL [Concomitant]
     Active Substance: RAMIPRIL
     Indication: Hypertension
     Dosage: UNK
     Route: 065

REACTIONS (6)
  - Arrhythmia [Unknown]
  - Nausea [Unknown]
  - Abdominal pain upper [Unknown]
  - Gastritis [Unknown]
  - Wrong technique in product usage process [Unknown]
  - Off label use [Unknown]
